FAERS Safety Report 25144619 (Version 1)
Quarter: 2025Q2

REPORT INFORMATION
  Report Type: Spontaneous
  Country: GB (occurrence: GB)
  Receive Date: 20250401
  Receipt Date: 20250401
  Transmission Date: 20250717
  Serious: Yes (Other)
  Sender: MYLAN
  Company Number: GB-MHRA-TPP54262174C2189717YC1742896068333

PATIENT
  Age: 67 Year
  Sex: Female
  Weight: 84 kg

DRUGS (4)
  1. FELODIPINE [Suspect]
     Active Substance: FELODIPINE
     Indication: Ill-defined disorder
     Dosage: 1 DOSAGE FORM, QD (ONCE DAILY)
     Dates: start: 20240723, end: 20250325
  2. ENOXAPARIN SODIUM [Concomitant]
     Active Substance: ENOXAPARIN SODIUM
     Indication: Ill-defined disorder
     Dosage: 1 DOSAGE FORM, QD (ADMINISTER ONE DAILY)
     Dates: start: 20240409, end: 20250310
  3. CANDESARTAN [Concomitant]
     Active Substance: CANDESARTAN
     Indication: Ill-defined disorder
     Dosage: 1 DOSAGE FORM, QD (ONCE DAILY)
     Dates: start: 20240723
  4. LACIDIPINE [Concomitant]
     Active Substance: LACIDIPINE
     Indication: Ill-defined disorder
     Dosage: 1 DOSAGE FORM, QD (TAKE ONE DAILY)
     Dates: start: 20250325

REACTIONS (3)
  - Muscle spasms [Unknown]
  - Pruritus [Unknown]
  - Rhinorrhoea [Recovered/Resolved]
